FAERS Safety Report 10218238 (Version 1)
Quarter: 2014Q2

REPORT INFORMATION
  Report Type: Report from Study
  Country: US (occurrence: US)
  Receive Date: 20140605
  Receipt Date: 20140605
  Transmission Date: 20141212
  Serious: Yes (Hospitalization)
  Sender: FDA-Public Use
  Company Number: US-ROCHE-1413495

PATIENT
  Age: 57 Year
  Sex: 0
  Weight: 53.12 kg

DRUGS (3)
  1. TRASTUZUMAB [Suspect]
     Indication: BREAST CANCER METASTATIC
     Route: 065
  2. PERTUZUMAB [Suspect]
     Indication: BREAST CANCER METASTATIC
     Route: 065
  3. DOCETAXEL [Suspect]
     Indication: BREAST CANCER METASTATIC
     Route: 065

REACTIONS (1)
  - Hypocalcaemia [Recovered/Resolved]
